FAERS Safety Report 6504079-2 (Version None)
Quarter: 2009Q4

REPORT INFORMATION
  Report Type: 
  Country: None (occurrence: None)
  Receive Date: 20091216
  Receipt Date: 20091216
  Transmission Date: 20100525
  Serious: Yes (Life-Threatening, Hospitalization, Other)
  Sender: FDA-Public Use
  Company Number: None

PATIENT
  Age: 21 Year
  Sex: Female
  Weight: 49.8957 kg

DRUGS (1)
  1. NUVARING [Suspect]
     Indication: ISCHAEMIC STROKE
     Dates: start: 20090224, end: 20091206

REACTIONS (1)
  - ISCHAEMIC STROKE [None]
